FAERS Safety Report 7688105-3 (Version None)
Quarter: 2011Q3

REPORT INFORMATION
  Report Type: 
  Country: None (occurrence: None)
  Receive Date: 20110817
  Receipt Date: 20110815
  Transmission Date: 20111222
  Serious: Yes (Hospitalization)
  Sender: FDA-Public Use
  Company Number: GR-SP-2011-06954

PATIENT
  Age: 69 Year
  Sex: Male

DRUGS (1)
  1. TICE BCG [Suspect]
     Indication: BLADDER CANCER
     Dosage: NOT REPORTED
     Route: 043

REACTIONS (5)
  - DISSEMINATED TUBERCULOSIS [None]
  - PYREXIA [None]
  - ASTHENIA [None]
  - MALAISE [None]
  - COUGH [None]
